FAERS Safety Report 8591012-5 (Version None)
Quarter: 2012Q3

REPORT INFORMATION
  Report Type: 
  Country: None (occurrence: None)
  Receive Date: 20120813
  Receipt Date: 20120807
  Transmission Date: 20120928
  Serious: Yes (Hospitalization)
  Sender: FDA-Public Use
  Company Number: BE-PFIZER INC-2012193055

PATIENT
  Age: 52 Year
  Sex: Female
  Weight: 68 kg

DRUGS (12)
  1. GLUCOPHAGE [Concomitant]
     Indication: GLUCOSE TOLERANCE TEST ABNORMAL
     Dosage: UNK
  2. MOBIC [Concomitant]
     Indication: INFLAMMATION
  3. GENOTROPIN [Suspect]
     Dosage: 0.5 MG, 7/WK
     Route: 058
     Dates: start: 20060612
  4. LEVOTHYROXINE [Concomitant]
     Indication: BLOOD THYROID STIMULATING HORMONE DECREASED
     Dosage: UNK
  5. REDOMEX [Concomitant]
     Indication: FIBROMYALGIA
  6. MOBIC [Concomitant]
     Indication: ANTIINFLAMMATORY THERAPY
     Dosage: UNK
  7. INDAPAMIDE [Concomitant]
     Indication: HYPERTENSION
     Dosage: UNK
  8. CLONAZEPAM [Concomitant]
     Indication: MYALGIA
  9. REDOMEX [Concomitant]
     Indication: MYALGIA
  10. CLONAZEPAM [Concomitant]
     Indication: MUSCULOSKELETAL PAIN
     Dosage: UNK
  11. CLONAZEPAM [Concomitant]
     Indication: FIBROMYALGIA
  12. REDOMEX [Concomitant]
     Indication: MUSCULOSKELETAL PAIN
     Dosage: UNK

REACTIONS (3)
  - UPPER LIMB FRACTURE [None]
  - PYELONEPHRITIS ACUTE [None]
  - PNEUMONIA [None]
